FAERS Safety Report 18412938 (Version 1)
Quarter: 2020Q4

REPORT INFORMATION
  Report Type: Spontaneous
  Country: US (occurrence: US)
  Receive Date: 20201021
  Receipt Date: 20201021
  Transmission Date: 20210114
  Serious: No
  Sender: FDA-Public Use
  Company Number: US-GE HEALTHCARE LIFE SCIENCES-2020CSU003351

PATIENT
  Age: 61 Year
  Sex: Male
  Weight: 87.08 kg

DRUGS (3)
  1. VISIPAQUE [Suspect]
     Active Substance: IODIXANOL
     Indication: COMPUTERISED TOMOGRAM AORTA
     Dosage: 100 ML (5ML/SEC)
     Route: 042
     Dates: start: 20200724, end: 20200724
  2. VISIPAQUE [Suspect]
     Active Substance: IODIXANOL
     Indication: ANGIOGRAM
  3. VISIPAQUE [Suspect]
     Active Substance: IODIXANOL
     Indication: AORTIC DISORDER

REACTIONS (1)
  - Pruritus [Recovered/Resolved]

NARRATIVE: CASE EVENT DATE: 20200724
